FAERS Safety Report 15257412 (Version 1)
Quarter: 2018Q3

REPORT INFORMATION
  Report Type: Spontaneous
  Country: US (occurrence: US)
  Receive Date: 20180808
  Receipt Date: 20180808
  Transmission Date: 20181010
  Serious: No
  Sender: FDA-Public Use
  Company Number: US-VIFOR (INTERNATIONAL) INC.-VIT-2018-07520

PATIENT
  Sex: Female

DRUGS (5)
  1. VELTASSA [Suspect]
     Active Substance: PATIROMER
     Indication: ESSENTIAL HYPERTENSION
  2. VELTASSA [Suspect]
     Active Substance: PATIROMER
     Indication: TYPE 2 DIABETES MELLITUS
  3. VELTASSA [Suspect]
     Active Substance: PATIROMER
     Indication: HYPERKALAEMIA
  4. VELTASSA [Suspect]
     Active Substance: PATIROMER
     Indication: PROTEINURIA
  5. VELTASSA [Suspect]
     Active Substance: PATIROMER
     Indication: OEDEMA

REACTIONS (2)
  - Unevaluable event [Unknown]
  - Dyspnoea [Unknown]
